FAERS Safety Report 4623127-8 (Version None)
Quarter: 2005Q1

REPORT INFORMATION
  Report Type: 
  Country: None (occurrence: None)
  Receive Date: 20050328
  Receipt Date: 20050328
  Transmission Date: 20050727
  Serious: Yes (Hospitalization)
  Sender: FDA-Public Use
  Company Number: None

PATIENT
  Sex: Female
  Weight: 92.2 kg

DRUGS (7)
  1. CARMUSTINE [Suspect]
     Indication: ANAPLASTIC ASTROCYTOMA
     Dosage: 209 MG IV ONCE Q 6 WEEKS
     Route: 042
     Dates: start: 20041216, end: 20050311
  2. TOPOTECAN 1.50 MG/M2/72 HR [Suspect]
     Indication: ANAPLASTIC ASTROCYTOMA
     Dosage: 3.14 MG IV WEEKLY VIA 72HR INFUSION
     Route: 042
     Dates: start: 20041216, end: 20050321
  3. COLACE [Concomitant]
  4. DILANTIN [Concomitant]
  5. DECADRON [Concomitant]
  6. PROTONIX [Concomitant]
  7. COUMIDIN [Concomitant]

REACTIONS (4)
  - BODY TEMPERATURE INCREASED [None]
  - CONVULSION [None]
  - HEADACHE [None]
  - MALIGNANT NEOPLASM PROGRESSION [None]
